FAERS Safety Report 14265991 (Version 7)
Quarter: 2018Q3

REPORT INFORMATION
  Report Type: Spontaneous
  Country: FR (occurrence: FR)
  Receive Date: 20171209
  Receipt Date: 20180814
  Transmission Date: 20181010
  Serious: Yes (Hospitalization, Other)
  Sender: FDA-Public Use
  Company Number: FR-AUROBINDO-AUR-APL-2017-44453

PATIENT
  Age: 63 Year
  Sex: Male

DRUGS (5)
  1. METHOTREXATE. [Suspect]
     Active Substance: METHOTREXATE
     Indication: RHEUMATOID ARTHRITIS
     Dosage: 20 MILLIGRAM, 1 PER WEEK
     Route: 065
  2. PREDNISONE. [Suspect]
     Active Substance: PREDNISONE
     Indication: RHEUMATOID ARTHRITIS
     Dosage: 7 MILLIGRAM, ONCE A DAY
     Route: 065
  3. CORTIVAZOL [Suspect]
     Active Substance: CORTIVAZOL
     Dosage: 120 () ; IN TOTAL
     Route: 065
     Dates: start: 201312, end: 201312
  4. CORTIVAZOL [Suspect]
     Active Substance: CORTIVAZOL
     Indication: TENOSYNOVITIS
     Dosage: INJECTION, 120 (UNIT NOT REPORTED) ()
     Route: 065
  5. CORTIVAZOL [Suspect]
     Active Substance: CORTIVAZOL
     Dosage: 120 () ; IN TOTAL
     Route: 065
     Dates: start: 201304, end: 201304

REACTIONS (5)
  - Skin warm [Recovered/Resolved]
  - Subcutaneous abscess [Recovered/Resolved]
  - Infective tenosynovitis [Recovered/Resolved]
  - Pain [Recovered/Resolved]
  - Phaehyphomycosis [Recovered/Resolved]

NARRATIVE: CASE EVENT DATE: 201304
